FAERS Safety Report 15420790 (Version 1)
Quarter: 2018Q3

REPORT INFORMATION
  Report Type: Spontaneous
  Country: US (occurrence: US)
  Receive Date: 20180924
  Receipt Date: 20180924
  Transmission Date: 20181010
  Serious: No
  Sender: FDA-Public Use
  Company Number: US-ALLERGAN-1807208US

PATIENT
  Sex: Female
  Weight: 77.98 kg

DRUGS (3)
  1. LINZESS [Suspect]
     Active Substance: LINACLOTIDE
     Indication: IRRITABLE BOWEL SYNDROME
     Dosage: 145 ?G, QAM BEFORE EATING
     Route: 048
     Dates: start: 2017
  2. LINZESS [Suspect]
     Active Substance: LINACLOTIDE
     Dosage: UNK
     Route: 048
  3. LINZESS [Suspect]
     Active Substance: LINACLOTIDE
     Dosage: UNK
     Route: 048

REACTIONS (5)
  - Off label use [Unknown]
  - Drug ineffective [Unknown]
  - Drug dose omission [Unknown]
  - Product quality issue [Unknown]
  - Diarrhoea [Recovered/Resolved]
